FAERS Safety Report 9321870 (Version 1)
Quarter: 2013Q2

REPORT INFORMATION
  Report Type: Spontaneous
  Country: IT (occurrence: IT)
  Receive Date: 20130531
  Receipt Date: 20130531
  Transmission Date: 20140414
  Serious: Yes (Hospitalization, Other)
  Sender: FDA-Public Use
  Company Number: IT-ROXANE LABORATORIES, INC.-2013-RO-00853RO

PATIENT
  Age: 81 Year
  Sex: Male

DRUGS (5)
  1. MEGESTROL ACETATE [Suspect]
     Dosage: 160 MG
  2. RAMIPRIL [Suspect]
  3. FUROSEMIDE [Suspect]
  4. OXYCODONE [Suspect]
  5. SPIRONOLACTONE [Suspect]

REACTIONS (6)
  - Adrenal insufficiency [Unknown]
  - Pneumonia [Recovered/Resolved]
  - Anaemia megaloblastic [Unknown]
  - Folate deficiency [Unknown]
  - Leukocytosis [Unknown]
  - Hyponatraemia [Unknown]
